FAERS Safety Report 21466052 (Version 1)
Quarter: 2022Q4

REPORT INFORMATION
  Report Type: Spontaneous
  Country: US (occurrence: None)
  Receive Date: 20221016
  Receipt Date: 20221016
  Transmission Date: 20230113
  Serious: Yes (Other)
  Sender: FDA-Public Use
  Company Number: None

PATIENT
  Age: 20 Year
  Sex: Male
  Weight: 56.25 kg

DRUGS (2)
  1. DEXMETHYLPHENIDATE HYDROCHLORIDE [Suspect]
     Active Substance: DEXMETHYLPHENIDATE HYDROCHLORIDE
     Indication: Attention deficit hyperactivity disorder
     Dosage: OTHER QUANTITY : 1 CAPSULE(S);?
     Route: 048
     Dates: start: 20221013, end: 20221014
  2. Focalin XR 25mg [Concomitant]

REACTIONS (7)
  - Product substitution issue [None]
  - Feeling abnormal [None]
  - Tremor [None]
  - Nervousness [None]
  - Disturbance in attention [None]
  - Drug effect faster than expected [None]
  - Adverse drug reaction [None]

NARRATIVE: CASE EVENT DATE: 20221014
